FAERS Safety Report 4788149-5 (Version None)
Quarter: 2005Q4

REPORT INFORMATION
  Report Type: 
  Country: None (occurrence: None)
  Receive Date: 20051005
  Receipt Date: 20050926
  Transmission Date: 20060501
  Serious: Yes (Other)
  Sender: FDA-Public Use
  Company Number: US-JNJFOC-20050906645

PATIENT
  Sex: Male
  Weight: 19.96 kg

DRUGS (1)
  1. CONCERTA [Suspect]
     Route: 048

REACTIONS (2)
  - HAEMATURIA [None]
  - NEPHROLITHIASIS [None]
